FAERS Safety Report 23375120 (Version 1)
Quarter: 2024Q1

REPORT INFORMATION
  Report Type: Report from Study
  Country: NO (occurrence: NO)
  Receive Date: 20240106
  Receipt Date: 20240106
  Transmission Date: 20240410
  Serious: Yes (Other)
  Sender: FDA-Public Use
  Company Number: NO-UCBSA-2023060941

PATIENT

DRUGS (6)
  1. CERTOLIZUMAB PEGOL [Suspect]
     Active Substance: CERTOLIZUMAB PEGOL
     Indication: Rheumatoid arthritis
     Dosage: UNK
  2. ETANERCEPT [Suspect]
     Active Substance: ETANERCEPT
     Indication: Rheumatoid arthritis
     Dosage: UNK
  3. GOLIMUMAB [Suspect]
     Active Substance: GOLIMUMAB
     Indication: Rheumatoid arthritis
     Dosage: UNK
  4. INFLIXIMAB [Suspect]
     Active Substance: INFLIXIMAB
     Indication: Rheumatoid arthritis
     Dosage: UNK
  5. ADALIMUMAB [Suspect]
     Active Substance: ADALIMUMAB\ISOPROPYL ALCOHOL
     Indication: Rheumatoid arthritis
     Dosage: UNK
  6. METHOTREXATE [Concomitant]
     Active Substance: METHOTREXATE
     Indication: Rheumatoid arthritis
     Dosage: UNK

REACTIONS (65)
  - Pyelonephritis [Unknown]
  - Pneumonia [Unknown]
  - Lyme disease [Unknown]
  - Rheumatoid arthritis [Unknown]
  - Iridocyclitis [Unknown]
  - Transient ischaemic attack [Unknown]
  - Angina pectoris [Unknown]
  - Atrioventricular block complete [Unknown]
  - Cardiac pacemaker insertion [Unknown]
  - Carotid arteriosclerosis [Unknown]
  - Large intestinal polypectomy [Unknown]
  - Syncope [Unknown]
  - Fall [Unknown]
  - Gastrointestinal haemorrhage [Unknown]
  - Myocardial infarction [Unknown]
  - Hepatic cirrhosis [Unknown]
  - Leukopenia [Unknown]
  - Rheumatoid vasculitis [Unknown]
  - Shoulder operation [Unknown]
  - Sjogren^s syndrome [Unknown]
  - Syringomyelia [Unknown]
  - Viral infection [Unknown]
  - Upper respiratory tract infection [Unknown]
  - Diarrhoea [Unknown]
  - Fracture [Unknown]
  - Influenza [Unknown]
  - Urinary tract infection [Unknown]
  - Arthralgia [Unknown]
  - Abdominal pain [Unknown]
  - Back pain [Unknown]
  - Conjunctivitis [Unknown]
  - Dyspepsia [Unknown]
  - Herpes zoster [Unknown]
  - Hypercholesterolaemia [Unknown]
  - Infection [Unknown]
  - Hepatic enzyme increased [Unknown]
  - Palpitations [Unknown]
  - Skin reaction [Unknown]
  - Wound infection [Unknown]
  - Oedema peripheral [Unknown]
  - Ligament sprain [Unknown]
  - Bursitis [Unknown]
  - Chest pain [Unknown]
  - Chronic obstructive pulmonary disease [Unknown]
  - Depression [Unknown]
  - Memory impairment [Unknown]
  - Haematuria [Unknown]
  - Incontinence [Unknown]
  - Allergy to arthropod sting [Unknown]
  - Menstruation irregular [Unknown]
  - Nausea [Unknown]
  - Night sweats [Unknown]
  - Nocturia [Unknown]
  - Osteoporosis [Unknown]
  - Otitis media [Unknown]
  - Periodontitis [Unknown]
  - Post procedural infection [Unknown]
  - Pruritus [Unknown]
  - Gastroenteritis viral [Unknown]
  - Tendon rupture [Unknown]
  - Biopsy skin [Unknown]
  - Tinnitus [Unknown]
  - Fatigue [Unknown]
  - Tooth infection [Unknown]
  - Urinary tract pain [Unknown]
